FAERS Safety Report 19962921 (Version 1)
Quarter: 2021Q4

REPORT INFORMATION
  Report Type: Spontaneous
  Country: US (occurrence: US)
  Receive Date: 20211015
  Receipt Date: 20211015
  Transmission Date: 20220303
  Serious: No
  Sender: FDA-Public Use
  Company Number: None

PATIENT
  Age: 73 Year
  Sex: Male
  Weight: 85.05 kg

DRUGS (15)
  1. TAFINLAR [Suspect]
     Active Substance: DABRAFENIB MESYLATE
     Indication: Malignant melanoma
     Dosage: ?          OTHER FREQUENCY:Q12H;
     Route: 048
     Dates: start: 20210901
  2. MEKINIST [Suspect]
     Active Substance: TRAMETINIB DIMETHYL SULFOXIDE
     Indication: Malignant melanoma
     Route: 048
     Dates: start: 20210901
  3. PANTOPRAZOLE SODIUM [Concomitant]
     Active Substance: PANTOPRAZOLE SODIUM
  4. TAMSULOSIN [Concomitant]
     Active Substance: TAMSULOSIN
  5. MORPHINE SULFATE [Concomitant]
     Active Substance: MORPHINE SULFATE
  6. HYDROXYCHLOROQUINE [Concomitant]
     Active Substance: HYDROXYCHLOROQUINE
  7. FUROSEMIDE [Concomitant]
     Active Substance: FUROSEMIDE
  8. METHOTREXATE [Concomitant]
     Active Substance: METHOTREXATE
  9. FAMOTIDINE [Concomitant]
     Active Substance: FAMOTIDINE
  10. LOSARTAN [Concomitant]
     Active Substance: LOSARTAN
  11. Multivitamin Adults 50+ [Concomitant]
  12. ASPIRIN [Concomitant]
     Active Substance: ASPIRIN
  13. Tylenol 650mg [Concomitant]
  14. PREDNISONE [Concomitant]
     Active Substance: PREDNISONE
  15. ACTEMRA [Concomitant]
     Active Substance: TOCILIZUMAB

REACTIONS (1)
  - Rheumatoid arthritis [None]

NARRATIVE: CASE EVENT DATE: 20211015
